FAERS Safety Report 14978700 (Version 3)
Quarter: 2018Q2

REPORT INFORMATION
  Report Type: Spontaneous
  Country: US (occurrence: US)
  Receive Date: 20180606
  Receipt Date: 20180627
  Transmission Date: 20180711
  Serious: Yes (Hospitalization)
  Sender: FDA-Public Use
  Company Number: US-BIOGEN-2018BI00585565

PATIENT
  Age: 53 Year
  Sex: Female

DRUGS (3)
  1. TECFIDERA [Suspect]
     Active Substance: DIMETHYL FUMARATE
     Indication: MULTIPLE SCLEROSIS
     Dosage: MAINTENANCE DOSE
     Route: 048
     Dates: start: 20180220, end: 20180522
  2. TECFIDERA [Suspect]
     Active Substance: DIMETHYL FUMARATE
     Dosage: MAINTENANCE DOSE
     Route: 048
     Dates: start: 20180225
  3. TECFIDERA [Suspect]
     Active Substance: DIMETHYL FUMARATE
     Route: 065
     Dates: start: 20180227

REACTIONS (20)
  - Dysphagia [Unknown]
  - Aphasia [Unknown]
  - Cerebral disorder [Unknown]
  - Liver disorder [Unknown]
  - Musculoskeletal disorder [Unknown]
  - Constipation [Unknown]
  - Kidney infection [Unknown]
  - Rash [Unknown]
  - Renal impairment [Unknown]
  - Cognitive disorder [Unknown]
  - Paraplegia [Unknown]
  - Chest discomfort [Unknown]
  - Blood urine present [Unknown]
  - Loss of consciousness [Unknown]
  - Coma [Unknown]
  - Multiple sclerosis [Unknown]
  - Swelling [Unknown]
  - Abdominal distension [Unknown]
  - Lethargy [Unknown]
  - Urticaria [Unknown]

NARRATIVE: CASE EVENT DATE: 201805
